FAERS Safety Report 7415619-3 (Version None)
Quarter: 2011Q2

REPORT INFORMATION
  Report Type: 
  Country: None (occurrence: None)
  Receive Date: 20110414
  Receipt Date: 20110405
  Transmission Date: 20111010
  Serious: Yes (Hospitalization)
  Sender: FDA-Public Use
  Company Number: IT-ASTRAZENECA-2011SE19346

PATIENT
  Age: 29722 Day
  Sex: Female

DRUGS (2)
  1. ASPIRIN [Concomitant]
     Route: 048
  2. CRESTOR [Suspect]
     Indication: DYSLIPIDAEMIA
     Route: 048
     Dates: start: 20110101, end: 20110318

REACTIONS (2)
  - BLOOD CREATINE PHOSPHOKINASE MB ABNORMAL [None]
  - MYOGLOBIN BLOOD INCREASED [None]
